FAERS Safety Report 24128893 (Version 4)
Quarter: 2024Q3

REPORT INFORMATION
  Report Type: Spontaneous
  Country: GB (occurrence: GB)
  Receive Date: 20240723
  Receipt Date: 20240827
  Transmission Date: 20241016
  Serious: Yes (Death, Other)
  Sender: DAIICHI
  Company Number: GB-DSJP-DSE-2024-124567

PATIENT
  Age: 52 Year
  Sex: Female

DRUGS (3)
  1. ENHERTU [Suspect]
     Active Substance: FAM-TRASTUZUMAB DERUXTECAN-NXKI
     Indication: HER2 positive breast cancer
     Dosage: 360 MG, ONCE EVERY 3 WK
     Route: 065
     Dates: start: 20240315
  2. ENHERTU [Suspect]
     Active Substance: FAM-TRASTUZUMAB DERUXTECAN-NXKI
     Indication: Breast cancer metastatic
     Dosage: 280 MG, ONCE EVERY 3 WK
     Route: 065
  3. ENHERTU [Suspect]
     Active Substance: FAM-TRASTUZUMAB DERUXTECAN-NXKI
     Dosage: 280 MG, ONCE EVERY 3 WK  (CYCLE 3)
     Route: 065
     Dates: end: 20240515

REACTIONS (4)
  - Disease progression [Fatal]
  - Spinal cord compression [Not Recovered/Not Resolved]
  - Interstitial lung disease [Recovered/Resolved]
  - Intentional product use issue [Recovered/Resolved]

NARRATIVE: CASE EVENT DATE: 20240416
